FAERS Safety Report 4320654-8 (Version None)
Quarter: 2004Q1

REPORT INFORMATION
  Report Type: 
  Country: None (occurrence: None)
  Receive Date: 20040318
  Receipt Date: 20040309
  Transmission Date: 20041129
  Serious: Yes (Hospitalization)
  Sender: FDA-Public Use
  Company Number: 7597

PATIENT
  Sex: Female

DRUGS (3)
  1. FLUOROURACIL [Suspect]
     Dosage: 1800 MG PER_CYCLE/ 300 MG/ M2 IV
     Route: 042
  2. METHOTREXATE [Suspect]
     Dosage: 60 MG PER_CYCLE IV
     Route: 042
  3. CYCLOPHOSPHAMIDE [Suspect]
     Dosage: 150 MG PO
     Route: 048

REACTIONS (17)
  - CHROMOSOMAL MUTATION [None]
  - CONFUSIONAL STATE [None]
  - DRUG TOXICITY [None]
  - GENERAL PHYSICAL HEALTH DETERIORATION [None]
  - LEUKOPENIA [None]
  - MALIGNANT NEOPLASM PROGRESSION [None]
  - MENTAL IMPAIRMENT [None]
  - METASTASES TO BONE [None]
  - METASTASES TO CENTRAL NERVOUS SYSTEM [None]
  - METASTASES TO LUNG [None]
  - MUCOUS MEMBRANE DISORDER [None]
  - ODYNOPHAGIA [None]
  - PYREXIA [None]
  - RASH [None]
  - REFUSAL OF TREATMENT BY PATIENT [None]
  - SEPSIS [None]
  - SKIN ULCER [None]
